FAERS Safety Report 9844349 (Version 1)
Quarter: 2014Q1

REPORT INFORMATION
  Report Type: Spontaneous
  Country: US (occurrence: US)
  Receive Date: 20140127
  Receipt Date: 20140127
  Transmission Date: 20141002
  Serious: Yes (Other)
  Sender: FDA-Public Use
  Company Number: PHHY2014US007524

PATIENT
  Age: 70 Year
  Sex: Female

DRUGS (2)
  1. IMATINIB [Suspect]
     Indication: CHRONIC MYELOID LEUKAEMIA
     Dosage: UNK
  2. NILOTINIB [Suspect]
     Indication: CHRONIC MYELOID LEUKAEMIA

REACTIONS (8)
  - Plasma cell myeloma [Recovering/Resolving]
  - Second primary malignancy [Unknown]
  - Chronic myeloid leukaemia [Unknown]
  - Fatigue [Unknown]
  - Weight decreased [Unknown]
  - Pancytopenia [Recovering/Resolving]
  - Malignant neoplasm progression [Unknown]
  - Therapeutic response decreased [Unknown]
